FAERS Safety Report 5709127-5 (Version None)
Quarter: 2008Q2

REPORT INFORMATION
  Report Type: 
  Country: None (occurrence: None)
  Receive Date: 20080416
  Receipt Date: 20080416
  Transmission Date: 20081010
  Serious: No
  Sender: FDA-Public Use
  Company Number: None

PATIENT
  Age: 53 Year
  Sex: Female
  Weight: 60.782 kg

DRUGS (3)
  1. ADVAIR DISKUS 100/50 [Suspect]
     Indication: ASTHMA
     Dosage: ONE BLISTER 2 X DAY INHAL
     Route: 055
     Dates: start: 20080411, end: 20080412
  2. LORATADINE [Suspect]
     Indication: COUGH
     Dosage: ONE TABLET 1 X DAY PO
     Route: 048
     Dates: start: 20080402, end: 20080413
  3. LORATADINE [Suspect]
     Indication: NASAL CONGESTION
     Dosage: ONE TABLET 1 X DAY PO
     Route: 048
     Dates: start: 20080402, end: 20080413

REACTIONS (1)
  - HYPOAESTHESIA [None]
